FAERS Safety Report 12496215 (Version 1)
Quarter: 2016Q2

REPORT INFORMATION
  Report Type: Other
  Country: DE (occurrence: DE)
  Receive Date: 20160624
  Receipt Date: 20160624
  Transmission Date: 20160815
  Serious: Yes (Other)
  Sender: FDA-Public Use
  Company Number: DE-CIPLA LTD.-2016DE08093

PATIENT

DRUGS (8)
  1. MIRTAZAPINE. [Suspect]
     Active Substance: MIRTAZAPINE
     Indication: SUICIDAL IDEATION
     Dosage: 120MG/TG
     Route: 048
     Dates: start: 20151013, end: 20151013
  2. VIVINOX SLEEP SLEEPING TABLETS STRONG [Suspect]
     Active Substance: DIPHENHYDRAMINE HYDROCHLORIDE
     Indication: SUICIDAL IDEATION
     Dosage: 450MG/TG
     Route: 048
     Dates: start: 20151013, end: 20151013
  3. METOPROLOL. [Suspect]
     Active Substance: METOPROLOL
     Indication: SUICIDAL IDEATION
     Dosage: 142.5MG/TG
     Route: 048
     Dates: start: 20151013
  4. BROMAZEPAM [Suspect]
     Active Substance: BROMAZEPAM
     Indication: SUICIDAL IDEATION
     Dosage: 120MG/TG
     Route: 048
     Dates: start: 20151013, end: 20151013
  5. QUETIAPINE. [Suspect]
     Active Substance: QUETIAPINE
     Indication: SUICIDAL IDEATION
     Dosage: 500MG/TG
     Route: 048
     Dates: start: 20151013, end: 20151013
  6. BETADORM-D [Suspect]
     Active Substance: DIPHENHYDRAMINE HYDROCHLORIDE
     Indication: SUICIDAL IDEATION
     Dosage: 6 DF/TG
     Dates: start: 20151013, end: 20151013
  7. LISINOPRIL. [Suspect]
     Active Substance: LISINOPRIL
     Indication: SUICIDAL IDEATION
     Dosage: 200MG/TG
     Route: 048
     Dates: start: 20151013, end: 20151013
  8. THYRONAJOD [Suspect]
     Active Substance: LEVOTHYROXINE SODIUM\POTASSIUM IODIDE
     Indication: SUICIDAL IDEATION
     Dosage: 5 DF/TG.
     Route: 048
     Dates: start: 20151013

REACTIONS (4)
  - Acidosis [Unknown]
  - Loss of consciousness [Unknown]
  - Suicide attempt [Unknown]
  - Intentional overdose [Unknown]

NARRATIVE: CASE EVENT DATE: 20151013
